FAERS Safety Report 25445842 (Version 2)
Quarter: 2025Q3

REPORT INFORMATION
  Report Type: Spontaneous
  Country: CO (occurrence: CO)
  Receive Date: 20250617
  Receipt Date: 20250922
  Transmission Date: 20251020
  Serious: Yes (Death, Hospitalization, Other)
  Sender: SANDOZ
  Company Number: CO-002147023-NVSC2025CO089208

PATIENT
  Sex: Male
  Weight: 45 kg

DRUGS (13)
  1. RUXOLITINIB [Suspect]
     Active Substance: RUXOLITINIB
     Dosage: 10 MG, Q12H
     Route: 048
     Dates: start: 20250624
  2. RUXOLITINIB [Suspect]
     Active Substance: RUXOLITINIB
     Indication: Graft versus host disease
     Dosage: 5 MG, Q12H
     Route: 048
     Dates: start: 202503
  3. MYCOPHENOLATE MOFETIL [Suspect]
     Active Substance: MYCOPHENOLATE MOFETIL
     Indication: Product used for unknown indication
     Dosage: 500 MG, QD
     Route: 065
  4. BUDESONIDE [Concomitant]
     Active Substance: BUDESONIDE
     Indication: Feeling abnormal
     Dosage: UNK, Q8H (THREE TIMES A DAY) (SINCE 6  MONTHS)
     Route: 065
  5. CALCIUM CARBONATE [Concomitant]
     Active Substance: CALCIUM CARBONATE
     Indication: Product used for unknown indication
     Route: 065
  6. ESOMEPRAZOLE [Concomitant]
     Active Substance: ESOMEPRAZOLE
     Indication: Gastritis
     Dosage: 40 MG (SINCE 1 YEAR)
     Route: 065
  7. FOLIC ACID [Concomitant]
     Active Substance: FOLIC ACID
     Indication: Product used for unknown indication
     Route: 065
  8. LEVOTHYROXINE [Concomitant]
     Active Substance: LEVOTHYROXINE
     Indication: Product used for unknown indication
     Route: 065
  9. LEVOTHYROXINE [Concomitant]
     Active Substance: LEVOTHYROXINE
     Dosage: 50 MG, QD (AT 5 AM)
     Route: 065
  10. PREDNISOLONE [Concomitant]
     Active Substance: PREDNISOLONE
     Indication: Product used for unknown indication
     Dosage: 1 DOSAGE FORM (TABLET), Q12H
     Route: 065
  11. TRIMETHOPRIM [Concomitant]
     Active Substance: TRIMETHOPRIM
     Indication: Product used for unknown indication
     Route: 065
  12. URSODIOL [Concomitant]
     Active Substance: URSODIOL
     Indication: Product used for unknown indication
     Dosage: 2 DOSAGE FORM (300 MG), Q4H (TABLET)
     Route: 065
  13. VALGANCICLOVIR [Concomitant]
     Active Substance: VALGANCICLOVIR
     Indication: Product used for unknown indication
     Dosage: 2 DOSAGE FORM (400 MG), QD
     Route: 065

REACTIONS (7)
  - Death [Fatal]
  - Oxygen saturation decreased [Not Recovered/Not Resolved]
  - Pneumonia fungal [Unknown]
  - Productive cough [Unknown]
  - Pyrexia [Unknown]
  - Gastrointestinal bacterial infection [Unknown]
  - Tachycardia [Unknown]
